FAERS Safety Report 7611192-5 (Version None)
Quarter: 2011Q3

REPORT INFORMATION
  Report Type: 
  Country: None (occurrence: None)
  Receive Date: 20110715
  Receipt Date: 20110706
  Transmission Date: 20111222
  Serious: Yes (Other)
  Sender: FDA-Public Use
  Company Number: US-JNJFOC-20110703812

PATIENT
  Sex: Male
  Weight: 103.42 kg

DRUGS (4)
  1. ZYTIGA [Suspect]
     Indication: PROSTATE CANCER METASTATIC
     Route: 048
     Dates: start: 20110601
  2. OXYCODONE HCL [Concomitant]
     Indication: PAIN MANAGEMENT
     Route: 048
  3. OXYCODONE HCL AND ACETAMINOPHEN [Concomitant]
     Indication: PAIN MANAGEMENT
     Route: 048
  4. PREDNISONE [Concomitant]
     Indication: PROSTATE CANCER
     Route: 048
     Dates: start: 20110601

REACTIONS (9)
  - PROSTATIC SPECIFIC ANTIGEN INCREASED [None]
  - ARTHRALGIA [None]
  - BLOOD BILIRUBIN INCREASED [None]
  - GASTRIC DISORDER [None]
  - DIARRHOEA [None]
  - FLATULENCE [None]
  - JAUNDICE [None]
  - WEIGHT DECREASED [None]
  - HYPOAESTHESIA [None]
